FAERS Safety Report 17186230 (Version 1)
Quarter: 2019Q4

REPORT INFORMATION
  Report Type: Spontaneous
  Country: FR (occurrence: FR)
  Receive Date: 20191220
  Receipt Date: 20191220
  Transmission Date: 20200122
  Serious: Yes (Hospitalization)
  Sender: FDA-Public Use
  Company Number: FR-MYLANLABS-2019M1126851

PATIENT
  Age: 70 Year
  Sex: Male
  Weight: 82 kg

DRUGS (1)
  1. AZATHIOPRINE TABLETS 50 MG [Suspect]
     Active Substance: AZATHIOPRINE
     Indication: MYASTHENIA GRAVIS
     Dosage: 150 MILLIGRAM, QD
     Route: 048
     Dates: start: 20190625, end: 20190821

REACTIONS (2)
  - Cholestasis [Recovering/Resolving]
  - Hepatocellular injury [Recovered/Resolved]

NARRATIVE: CASE EVENT DATE: 20190805
